FAERS Safety Report 15685341 (Version 4)
Quarter: 2019Q1

REPORT INFORMATION
  Report Type: Spontaneous
  Country: DE (occurrence: DE)
  Receive Date: 20181204
  Receipt Date: 20190307
  Transmission Date: 20190417
  Serious: Yes (Hospitalization, Other)
  Sender: FDA-Public Use
  Company Number: DE-PFIZER INC-2018491908

PATIENT
  Age: 33 Year
  Sex: Male
  Weight: 96 kg

DRUGS (1)
  1. XELJANZ [Suspect]
     Active Substance: TOFACITINIB CITRATE
     Indication: COLITIS ULCERATIVE
     Dosage: 10 MG, 2X/DAY
     Route: 048
     Dates: start: 20181101, end: 201811

REACTIONS (5)
  - Hepatic enzyme increased [Recovering/Resolving]
  - Hepatic failure [Unknown]
  - Adjustment disorder [Unknown]
  - Hepatotoxicity [Unknown]
  - Hepatitis acute [Not Recovered/Not Resolved]

NARRATIVE: CASE EVENT DATE: 2018
